FAERS Safety Report 7906026-5 (Version None)
Quarter: 2011Q4

REPORT INFORMATION
  Report Type: 
  Country: None (occurrence: None)
  Receive Date: 20111110
  Receipt Date: 20111102
  Transmission Date: 20120403
  Serious: Yes (Hospitalization, Other)
  Sender: FDA-Public Use
  Company Number: IT-BRISTOL-MYERS SQUIBB COMPANY-16215147

PATIENT
  Age: 84 Year
  Sex: Female

DRUGS (13)
  1. COUMADIN [Suspect]
     Indication: ATRIAL FIBRILLATION
     Dosage: 1DF:1 UNIT 01JAN2008 TO 28JUN2011
     Route: 048
     Dates: start: 20080101
  2. OMEPRAZOLE [Concomitant]
  3. LANOXIN [Concomitant]
  4. CARVEDILOL [Concomitant]
     Dosage: 1DF:1.5UNITS(6.25MG)
  5. NEURONTIN [Concomitant]
  6. ATORVASTATIN CALCIUM [Concomitant]
  7. ALDACTONE [Concomitant]
  8. ENALAPRIL MALEATE [Concomitant]
  9. FOLINA [Concomitant]
  10. NITRODERM [Concomitant]
  11. FERROUS SULFATE TAB [Concomitant]
     Dosage: 2 UNITS
  12. LASIX [Concomitant]
  13. HUMALOG [Concomitant]
     Indication: DIABETES MELLITUS
     Dosage: 1DF:100U/ML (16 UNITS)  ALSO TAKEN 12 UNITS

REACTIONS (3)
  - ANAEMIA [None]
  - MELAENA [None]
  - GASTRITIS EROSIVE [None]
